FAERS Safety Report 9147752 (Version 2)
Quarter: 2013Q2

REPORT INFORMATION
  Report Type: Spontaneous
  Country: IT (occurrence: IT)
  Receive Date: 20130307
  Receipt Date: 20130507
  Transmission Date: 20140414
  Serious: No
  Sender: FDA-Public Use
  Company Number: IT-UCBSA-079727

PATIENT
  Age: 22 Year
  Sex: Female

DRUGS (2)
  1. KEPPRA [Suspect]
     Indication: HEAD INJURY
     Dosage: DAILY DOSE: 1500 MG, STRENGTH: 500 MG
     Route: 048
     Dates: start: 20100101, end: 20130203
  2. TEGRETOL [Suspect]
     Indication: HEAD INJURY
     Dosage: DAILY DOSE: 1 DF, STRENGTH: 200 MG
     Route: 048
     Dates: start: 20100101, end: 20130203

REACTIONS (3)
  - Thrombocytopenia [Not Recovered/Not Resolved]
  - Hypersensitivity [Unknown]
  - Leukopenia [Not Recovered/Not Resolved]
